FAERS Safety Report 12091779 (Version 3)
Quarter: 2016Q2

REPORT INFORMATION
  Report Type: Spontaneous
  Country: ES (occurrence: ES)
  Receive Date: 20160218
  Receipt Date: 20160405
  Transmission Date: 20160815
  Serious: Yes (Other)
  Sender: FDA-Public Use
  Company Number: ES-AMGEN-ESPSP2016010519

PATIENT
  Sex: Female

DRUGS (1)
  1. PROLIA [Suspect]
     Active Substance: DENOSUMAB
     Indication: PRODUCT USED FOR UNKNOWN INDICATION
     Dosage: UNK
     Route: 065
     Dates: start: 201506

REACTIONS (9)
  - Gait disturbance [Unknown]
  - Urinary tract infection [Recovered/Resolved]
  - Walking aid user [Unknown]
  - Parkinson^s disease [Unknown]
  - Joint effusion [Unknown]
  - Sciatica [Recovered/Resolved]
  - Tendonitis [Recovered/Resolved]
  - Arthralgia [Recovering/Resolving]
  - Arthritis [Unknown]

NARRATIVE: CASE EVENT DATE: 201506
